FAERS Safety Report 15689141 (Version 1)
Quarter: 2018Q4

REPORT INFORMATION
  Report Type: Spontaneous
  Country: JP (occurrence: JP)
  Receive Date: 20181205
  Receipt Date: 20181205
  Transmission Date: 20190205
  Serious: Yes (Hospitalization, Other)
  Sender: FDA-Public Use
  Company Number: JP-ROCHE-2225832

PATIENT
  Age: 3 Year
  Sex: Male

DRUGS (5)
  1. XOFLUZA [Suspect]
     Active Substance: BALOXAVIR MARBOXIL
     Indication: INFLUENZA
     Route: 048
     Dates: start: 20181026, end: 20181026
  2. MUCOSOLVAN [Concomitant]
     Active Substance: AMBROXOL HYDROCHLORIDE
     Route: 065
     Dates: start: 20181001
  3. C-CYSTEN [Concomitant]
     Active Substance: CARBOCYSTEINE
     Route: 065
     Dates: start: 20181001
  4. ONON [Concomitant]
     Active Substance: PRANLUKAST
     Route: 065
     Dates: start: 20181001
  5. ASVERIN (TIPEPIDINE HIBENZATE) [Concomitant]
     Active Substance: TIPEPIDINE HIBENZATE
     Route: 065
     Dates: start: 20181001

REACTIONS (2)
  - Seizure [Recovered/Resolved]
  - Pneumonia [Recovered/Resolved]

NARRATIVE: CASE EVENT DATE: 20181027
